FAERS Safety Report 17471826 (Version 1)
Quarter: 2020Q1

REPORT INFORMATION
  Report Type: Spontaneous
  Country: GB (occurrence: GB)
  Receive Date: 20200228
  Receipt Date: 20200228
  Transmission Date: 20200409
  Serious: Yes (Life-Threatening, Hospitalization, Disabling, Other)
  Sender: FDA-Public Use
  Company Number: GB-TEVA-2020-GB-1191674

PATIENT
  Age: 50 Year
  Sex: Male
  Weight: 80 kg

DRUGS (3)
  1. OFLOXACIN. [Suspect]
     Active Substance: OFLOXACIN
     Indication: EPIDIDYMITIS
     Dosage: 2 X 14 DAY COURSES OF 28 X 200MG OFLOXACIN. 1ST COURSE 28/9/17-10/10/17. 2ND COURSE 26/10/17-8/11/17
     Route: 048
     Dates: start: 20171026, end: 20171108
  2. NORTRIPTYLINE [Concomitant]
     Active Substance: NORTRIPTYLINE
  3. OFLOXACIN. [Suspect]
     Active Substance: OFLOXACIN
     Dosage: 200 MG
     Route: 048
     Dates: start: 20170928, end: 20171010

REACTIONS (66)
  - Nervous system disorder [Recovered/Resolved with Sequelae]
  - Paraesthesia [Unknown]
  - Lacrimation disorder [Unknown]
  - Urethral pain [Unknown]
  - Swollen tongue [Unknown]
  - Influenza like illness [Unknown]
  - Joint stiffness [Unknown]
  - Urine odour abnormal [Unknown]
  - Abnormal loss of weight [Not Recovered/Not Resolved]
  - Genital burning sensation [Unknown]
  - Cardiac arrest [Recovered/Resolved with Sequelae]
  - Behaviour disorder [Not Recovered/Not Resolved]
  - Tongue discomfort [Unknown]
  - Immunosuppression [Not Recovered/Not Resolved]
  - Skin papilloma [Unknown]
  - Rash [Recovering/Resolving]
  - Facial nerve disorder [Recovering/Resolving]
  - Ocular discomfort [Unknown]
  - Rash macular [Unknown]
  - Rash [Unknown]
  - Tongue eruption [Unknown]
  - Panic attack [Unknown]
  - Palpitations [Unknown]
  - Myocardial infarction [Unknown]
  - Axillary pain [Unknown]
  - Rhinorrhoea [Unknown]
  - Muscle spasms [Unknown]
  - Anxiety [Unknown]
  - Neuropathy peripheral [Not Recovered/Not Resolved]
  - Skin mass [Unknown]
  - Trismus [Unknown]
  - Candida infection [Unknown]
  - Ocular hyperaemia [Unknown]
  - Angina pectoris [Recovering/Resolving]
  - Eyelid disorder [Unknown]
  - Hypokinesia [Unknown]
  - Urine flow decreased [Not Recovered/Not Resolved]
  - Night sweats [Unknown]
  - Cardiac flutter [Unknown]
  - Insomnia [Unknown]
  - Gastrointestinal disorder [Not Recovered/Not Resolved]
  - Pulmonary pain [Unknown]
  - Arthralgia [Not Recovered/Not Resolved]
  - Muscle atrophy [Not Recovered/Not Resolved]
  - Eye discharge [Unknown]
  - Oropharyngeal pain [Unknown]
  - Pain [Unknown]
  - Spinal pain [Unknown]
  - Cognitive disorder [Unknown]
  - Chest pain [Not Recovered/Not Resolved]
  - Diarrhoea [Recovered/Resolved with Sequelae]
  - Testicular pain [Unknown]
  - Acrochordon [Unknown]
  - Joint noise [Unknown]
  - Renal pain [Unknown]
  - Abdominal discomfort [Not Recovered/Not Resolved]
  - Tongue discolouration [Unknown]
  - Tendonitis [Not Recovered/Not Resolved]
  - Incontinence [Not Recovered/Not Resolved]
  - Musculoskeletal stiffness [Unknown]
  - Oral discomfort [Unknown]
  - Pigmentation lip [Unknown]
  - Lip disorder [Unknown]
  - Bradycardia [Unknown]
  - Stomatitis [Unknown]
  - Eye irritation [Unknown]

NARRATIVE: CASE EVENT DATE: 20170929
